FAERS Safety Report 17336949 (Version 3)
Quarter: 2020Q1

REPORT INFORMATION
  Report Type: Report from Study
  Country: BR (occurrence: BR)
  Receive Date: 20200129
  Receipt Date: 20200303
  Transmission Date: 20200409
  Serious: Yes (Other)
  Sender: FDA-Public Use
  Company Number: NVSC2020BR020875

PATIENT
  Sex: Female
  Weight: 58 kg

DRUGS (1)
  1. EXELON PATCH [Suspect]
     Active Substance: RIVASTIGMINE
     Indication: DEMENTIA ALZHEIMER^S TYPE
     Dosage: 9.5 MG, QD PATCH 10 (CM2)
     Route: 062
     Dates: start: 2016

REACTIONS (2)
  - Product adhesion issue [Not Recovered/Not Resolved]
  - Dementia Alzheimer^s type [Unknown]

NARRATIVE: CASE EVENT DATE: 2016
